FAERS Safety Report 5406923-9 (Version None)
Quarter: 2007Q3

REPORT INFORMATION
  Report Type: 
  Country: None (occurrence: None)
  Receive Date: 20070807
  Receipt Date: 20070803
  Transmission Date: 20080115
  Serious: Yes (Death, Life-Threatening, Hospitalization, Disabling)
  Sender: FDA-Public Use
  Company Number: PHHO2007MX11945

PATIENT
  Age: 54 Year
  Sex: Female

DRUGS (5)
  1. MYCOPHENOLATE MOFETIL [Concomitant]
     Indication: RENAL TRANSPLANT
     Dates: start: 20070610
  2. PREDNISONE TAB [Concomitant]
     Indication: RENAL TRANSPLANT
     Route: 065
     Dates: start: 20070613
  3. VALCYTE [Concomitant]
  4. CYCLOSPORINE [Suspect]
     Indication: RENAL TRANSPLANT
     Dosage: 400 UNITS
     Route: 065
     Dates: start: 20070612, end: 20070614
  5. CYCLOSPORINE [Suspect]
     Dosage: 200 MILLIGRAM 1 DAY
     Route: 048
     Dates: start: 20070615, end: 20070630

REACTIONS (12)
  - HAEMODYNAMIC INSTABILITY [None]
  - HYPOTENSION [None]
  - KLEBSIELLA INFECTION [None]
  - MULTI-ORGAN FAILURE [None]
  - POSTOPERATIVE WOUND INFECTION [None]
  - RENAL IMPAIRMENT [None]
  - RENAL VESSEL DISORDER [None]
  - RESPIRATORY FAILURE [None]
  - SEPTIC SHOCK [None]
  - URINE OUTPUT DECREASED [None]
  - WHITE BLOOD CELL COUNT DECREASED [None]
  - WOUND NECROSIS [None]
